FAERS Safety Report 9364978 (Version 1)
Quarter: 2013Q2

REPORT INFORMATION
  Report Type: Spontaneous
  Country: US (occurrence: US)
  Receive Date: 20130624
  Receipt Date: 20130628
  Transmission Date: 20140414
  Serious: Yes (Hospitalization, Other)
  Sender: FDA-Public Use
  Company Number: US-NICOBRDEVP-2013-10836

PATIENT
  Age: 80 Year
  Sex: Female

DRUGS (3)
  1. NORCO (UNKNOWN) (WATSON LABORATORIES) [Suspect]
     Indication: HERPES ZOSTER
     Dosage: UNK
     Route: 065
  2. ACYCLOVIR (AMALLC) [Suspect]
     Indication: HERPES ZOSTER
     Dosage: UNK
     Route: 065
  3. LYRICA [Suspect]
     Indication: HERPES ZOSTER
     Dosage: UNK
     Route: 065

REACTIONS (1)
  - Convulsion [Unknown]
